FAERS Safety Report 19995907 (Version 1)
Quarter: 2021Q4

REPORT INFORMATION
  Report Type: Spontaneous
  Country: US (occurrence: US)
  Receive Date: 20211026
  Receipt Date: 20211026
  Transmission Date: 20220303
  Serious: Yes (Life-Threatening, Hospitalization, Other)
  Sender: FDA-Public Use
  Company Number: US-NORTHSTAR HEALTHCARE HOLDINGS-US-2021NSR000105

PATIENT
  Age: 30 Year
  Sex: Female

DRUGS (1)
  1. HYDROXYZINE HYDROCHLORIDE [Suspect]
     Active Substance: HYDROXYZINE HYDROCHLORIDE
     Indication: Suicide attempt
     Dosage: 2 G, UNK
     Route: 048

REACTIONS (2)
  - Overdose [Recovered/Resolved]
  - Toxicity to various agents [Recovered/Resolved]
